FAERS Safety Report 8956168 (Version 5)
Quarter: 2014Q4

REPORT INFORMATION
  Report Type: Report from Study
  Country: JP (occurrence: JP)
  Receive Date: 20121210
  Receipt Date: 20141106
  Transmission Date: 20150529
  Serious: Yes (Death)
  Sender: FDA-Public Use
  Company Number: PHHY2012JP112740

PATIENT
  Age: 65 Year
  Sex: Male
  Weight: 55 kg

DRUGS (9)
  1. HARNAL [Concomitant]
     Active Substance: TAMSULOSIN HYDROCHLORIDE
     Indication: NEUROGENIC BLADDER
     Dosage: 0.2 MG, QD
     Route: 048
     Dates: end: 20121129
  2. UBRETID [Concomitant]
     Active Substance: DISTIGMINE BROMIDE
     Indication: NEUROGENIC BLADDER
     Dosage: 5 MG, QD
     Route: 048
     Dates: end: 20121129
  3. SOLU-MEDROL [Concomitant]
     Active Substance: METHYLPREDNISOLONE SODIUM SUCCINATE
     Dosage: 1000 MG, QD
     Route: 051
     Dates: start: 20111202, end: 20111204
  4. GILENYA [Suspect]
     Active Substance: FINGOLIMOD HYDROCHLORIDE
     Dosage: 0.5 MG, UNK
     Route: 048
     Dates: start: 20121109, end: 20121113
  5. TEGRETOL [Concomitant]
     Active Substance: CARBAMAZEPINE
     Indication: SEIZURE
     Dosage: 400 MG, QD
     Route: 048
     Dates: end: 20121129
  6. SOLU-MEDROL [Concomitant]
     Active Substance: METHYLPREDNISOLONE SODIUM SUCCINATE
     Indication: MULTIPLE SCLEROSIS
     Dosage: 1000 MG, QD
     Route: 051
     Dates: start: 20111125, end: 20111127
  7. GILENYA [Suspect]
     Active Substance: FINGOLIMOD HYDROCHLORIDE
     Indication: MULTIPLE SCLEROSIS
     Dosage: 0.5 MG, QD
     Route: 048
     Dates: start: 20120531, end: 20121031
  8. TAKEPRON [Concomitant]
     Active Substance: LANSOPRAZOLE
     Indication: PROPHYLAXIS
     Dosage: 15 MG, QD
     Route: 048
     Dates: end: 20121129
  9. SOLU-MEDROL [Concomitant]
     Active Substance: METHYLPREDNISOLONE SODIUM SUCCINATE
     Dosage: 1000 MG, QD
     Route: 051
     Dates: start: 20111209, end: 20111211

REACTIONS (6)
  - Anaemia [Fatal]
  - Gamma-glutamyltransferase increased [Fatal]
  - Metastases to liver [Fatal]
  - Metastases to lymph nodes [Fatal]
  - Metastases to adrenals [Fatal]
  - Adenocarcinoma gastric [Fatal]

NARRATIVE: CASE EVENT DATE: 20121113
